FAERS Safety Report 6821272-X (Version None)
Quarter: 2010Q3

REPORT INFORMATION
  Report Type: 
  Country: None (occurrence: None)
  Receive Date: 20100707
  Receipt Date: 20080816
  Transmission Date: 20110219
  Serious: No
  Sender: FDA-Public Use
  Company Number: US-PFIZER INC-2008057108

PATIENT
  Sex: Female

DRUGS (1)
  1. SERTRALINE [Suspect]
     Dates: start: 20080618

REACTIONS (3)
  - FEELING ABNORMAL [None]
  - HYPERSOMNIA [None]
  - LIP BLISTER [None]
